FAERS Safety Report 9562597 (Version 2)
Quarter: 2013Q4

REPORT INFORMATION
  Report Type: Spontaneous
  Country: US (occurrence: US)
  Receive Date: 20130927
  Receipt Date: 20131026
  Transmission Date: 20140711
  Serious: No
  Sender: FDA-Public Use
  Company Number: US-009507513-1309USA013522

PATIENT
  Age: 75 Year
  Sex: Female
  Weight: 52.15 kg

DRUGS (6)
  1. CLARITIN REDITABS 12HR [Suspect]
     Indication: THROAT IRRITATION
     Dosage: 5 MG, ONCE
     Route: 048
     Dates: start: 20130918
  2. CLARITIN REDITABS 12HR [Suspect]
     Indication: SNEEZING
  3. LUCENTIS [Concomitant]
     Indication: PRODUCT USED FOR UNKNOWN INDICATION
     Dosage: UNK, UNKNOWN
  4. CALCIUM (UNSPECIFIED) [Concomitant]
     Indication: PRODUCT USED FOR UNKNOWN INDICATION
     Dosage: UNK, UNKNOWN
  5. GLUCOSAMINE [Concomitant]
     Indication: PRODUCT USED FOR UNKNOWN INDICATION
     Dosage: UNK, UNKNOWN
  6. OCUVITE PRESERVISION [Concomitant]
     Indication: PRODUCT USED FOR UNKNOWN INDICATION
     Dosage: UNK, UNKNOWN

REACTIONS (5)
  - Sneezing [Recovered/Resolved]
  - Eye pruritus [Recovered/Resolved]
  - Nasal discomfort [Recovered/Resolved]
  - Lip pruritus [Recovered/Resolved]
  - Drug ineffective [Unknown]
